FAERS Safety Report 5324248-7 (Version None)
Quarter: 2007Q2

REPORT INFORMATION
  Report Type: 
  Country: None (occurrence: None)
  Receive Date: 20070508
  Receipt Date: 20070424
  Transmission Date: 20071010
  Serious: Yes (Hospitalization, Other)
  Sender: FDA-Public Use
  Company Number: 07-000942

PATIENT
  Age: 29 Year
  Sex: Female
  Weight: 77.1 kg

DRUGS (3)
  1. FEMCON FE(NORETHINDRONE, ETHINYL ESTRADIOL) CHEWABLE, 35/400UG [Suspect]
     Indication: CONTRACEPTION
     Dosage: 35/400UG,QD,ORAL
     Route: 048
     Dates: start: 20070101, end: 20070417
  2. FEMCON FE(NORETHINDRONE, ETHINYL ESTRADIOL) CHEWABLE, 35/400UG [Suspect]
     Indication: MENORRHAGIA
     Dosage: 35/400UG,QD,ORAL
     Route: 048
     Dates: start: 20070101, end: 20070417
  3. SYNTHROID [Concomitant]

REACTIONS (11)
  - ABDOMINAL HERNIA [None]
  - ABDOMINAL PAIN [None]
  - DEVICE FAILURE [None]
  - DRUG ADMINISTRATION ERROR [None]
  - DYSPNOEA [None]
  - HAEMOGLOBIN DECREASED [None]
  - OEDEMA PERIPHERAL [None]
  - POST PROCEDURAL HAEMORRHAGE [None]
  - THROMBOSIS [None]
  - VAGINAL HAEMORRHAGE [None]
  - WHITE BLOOD CELL COUNT INCREASED [None]
